FAERS Safety Report 9163895 (Version 2)
Quarter: 2013Q1

REPORT INFORMATION
  Report Type: Spontaneous
  Country: JP (occurrence: JP)
  Receive Date: 20130314
  Receipt Date: 20130326
  Transmission Date: 20140127
  Serious: Yes (Hospitalization)
  Sender: FDA-Public Use
  Company Number: JP-ASTRAZENECA-2013SE15910

PATIENT
  Age: 74 Year
  Sex: Female
  Weight: 69 kg

DRUGS (7)
  1. NEXIUM [Suspect]
     Indication: GASTROOESOPHAGEAL REFLUX DISEASE
     Route: 048
     Dates: start: 20130209, end: 20130218
  2. NEXIUM [Suspect]
     Indication: GASTROOESOPHAGEAL REFLUX DISEASE
     Route: 048
     Dates: start: 20130222, end: 20130228
  3. HEPARIN [Suspect]
     Indication: MESENTERIC ARTERY THROMBOSIS
     Route: 065
     Dates: start: 20130219
  4. MUCOSTA [Concomitant]
     Indication: GASTROOESOPHAGEAL REFLUX DISEASE
     Route: 048
     Dates: start: 20130224, end: 20130304
  5. GASMOTIN [Concomitant]
     Indication: GASTROOESOPHAGEAL REFLUX DISEASE
     Route: 048
     Dates: start: 20130225, end: 20130305
  6. CRAVIT [Concomitant]
     Indication: URINARY TRACT INFECTION
     Route: 048
     Dates: start: 20130226, end: 20130301
  7. TAKEPRON [Concomitant]
     Indication: GASTROOESOPHAGEAL REFLUX DISEASE
     Dates: start: 20130219

REACTIONS (4)
  - Influenza [Recovered/Resolved]
  - Mesenteric artery thrombosis [Unknown]
  - Leukopenia [Recovering/Resolving]
  - Urinary tract infection [Unknown]
